FAERS Safety Report 4746512-2 (Version None)
Quarter: 2005Q3

REPORT INFORMATION
  Report Type: 
  Country: None (occurrence: None)
  Receive Date: 20050816
  Receipt Date: 20050816
  Transmission Date: 20060218
  Serious: Yes (Death, Hospitalization, Other)
  Sender: FDA-Public Use
  Company Number: None

PATIENT
  Age: 3 Month
  Sex: Male

DRUGS (4)
  1. A AND D ORIGINAL (LANOLIN/PETROLATUM) OINTMENT [Suspect]
     Indication: RASH
     Dosage: TOPICAL
     Route: 061
  2. A AND D ORIGINAL (LANOLIN/PETROLATUM) OINTMENT [Suspect]
     Indication: SKIN IRRITATION
     Dosage: TOPICAL
     Route: 061
  3. OXYGEN [Suspect]
     Dosage: INHALATION
     Route: 055
  4. MINERAL OIL OIL [Suspect]
     Indication: RASH
     Dosage: TOPICAL
     Route: 061

REACTIONS (4)
  - APNOEA [None]
  - DEVICE FAILURE [None]
  - SKIN EXFOLIATION [None]
  - THERMAL BURN [None]
